FAERS Safety Report 21009403 (Version 1)
Quarter: 2022Q2

REPORT INFORMATION
  Report Type: Spontaneous
  Country: US (occurrence: None)
  Receive Date: 20220624
  Receipt Date: 20220624
  Transmission Date: 20220721
  Serious: Yes (Death, Hospitalization, Disabling, Congenital Anomaly, Other)
  Sender: FDA-Public Use
  Company Number: None

PATIENT
  Age: 32 Year
  Sex: Female
  Weight: 92.25 kg

DRUGS (4)
  1. ZONISAMIDE [Suspect]
     Active Substance: ZONISAMIDE
     Indication: Epilepsy
     Dosage: FREQUENCY : AT BEDTIME;?
     Route: 048
     Dates: start: 20220612, end: 20220613
  2. ZONISAMIDE [Concomitant]
  3. VITAMINS [Concomitant]
     Active Substance: VITAMINS
  4. FOLIC ACID [Concomitant]
     Active Substance: FOLIC ACID

REACTIONS (2)
  - Pregnancy [None]
  - Exposure during pregnancy [None]

NARRATIVE: CASE EVENT DATE: 20220615
